FAERS Safety Report 24586895 (Version 1)
Quarter: 2024Q4

REPORT INFORMATION
  Report Type: Spontaneous
  Country: US (occurrence: US)
  Receive Date: 20241107
  Receipt Date: 20241107
  Transmission Date: 20250114
  Serious: Yes (Death, Other)
  Sender: SANDOZ
  Company Number: US-SANDOZ-SDZ2024US092986

PATIENT
  Sex: Male

DRUGS (1)
  1. ZIEXTENZO [Suspect]
     Active Substance: PEGFILGRASTIM-BMEZ
     Indication: Pancreatic carcinoma
     Dosage: 6 MG, Q2W
     Route: 058
     Dates: start: 20240531, end: 20240930

REACTIONS (1)
  - Pancreatic carcinoma [Fatal]
